FAERS Safety Report 12197687 (Version 1)
Quarter: 2016Q1

REPORT INFORMATION
  Report Type: Spontaneous
  Country: US (occurrence: US)
  Receive Date: 20160322
  Receipt Date: 20160322
  Transmission Date: 20160526
  Serious: No
  Sender: FDA-Public Use
  Company Number: US-AMGEN-USASP2016034339

PATIENT
  Age: 55 Year
  Sex: Female

DRUGS (1)
  1. ENBREL [Suspect]
     Active Substance: ETANERCEPT
     Indication: PSORIATIC ARTHROPATHY
     Dosage: 50 MG, QWK
     Route: 058
     Dates: start: 20151215

REACTIONS (7)
  - Nasopharyngitis [Unknown]
  - Oral mucosal blistering [Unknown]
  - Paranasal sinus hypersecretion [Recovered/Resolved]
  - Injection site pain [Unknown]
  - Stomatitis [Unknown]
  - Pyrexia [Unknown]
  - Cough [Unknown]
